FAERS Safety Report 23680538 (Version 6)
Quarter: 2025Q2

REPORT INFORMATION
  Report Type: Spontaneous
  Country: US (occurrence: US)
  Receive Date: 20240328
  Receipt Date: 20250408
  Transmission Date: 20250716
  Serious: No
  Sender: SANOFI AVENTIS
  Company Number: US-SA-SAC20240322000842

PATIENT
  Age: 12 Year
  Sex: Male
  Weight: 59.87 kg

DRUGS (3)
  1. ELOCTATE [Suspect]
     Active Substance: EFMOROCTOCOG ALFA
     Indication: Factor VIII deficiency
     Dosage: 2000 U (1500 UNITS PLUS 500 UNITS), BIW
     Route: 042
     Dates: start: 202303
  2. ELOCTATE [Suspect]
     Active Substance: EFMOROCTOCOG ALFA
     Indication: Factor VIII deficiency
     Dosage: 2000 U (1500 UNITS PLUS 500 UNITS), BIW
     Route: 042
     Dates: start: 202303
  3. HEPARIN [Concomitant]
     Active Substance: HEPARIN SODIUM

REACTIONS (7)
  - Epistaxis [Recovered/Resolved]
  - Haemorrhage [Not Recovered/Not Resolved]
  - Weight increased [Recovering/Resolving]
  - Haemorrhage [Recovered/Resolved]
  - Nasopharyngitis [Unknown]
  - Epistaxis [Recovered/Resolved]
  - Pyrexia [Unknown]

NARRATIVE: CASE EVENT DATE: 20240316
